FAERS Safety Report 4684213-X (Version None)
Quarter: 2005Q2

REPORT INFORMATION
  Report Type: 
  Country: None (occurrence: None)
  Receive Date: 20050525
  Receipt Date: 20041015
  Transmission Date: 20051028
  Serious: Yes (Hospitalization)
  Sender: FDA-Public Use
  Company Number: MK200410-0141-1

PATIENT
  Age: 48 Year
  Sex: Female

DRUGS (1)
  1. METHADOSE [Suspect]
     Dosage: 30 MG, QAM, 30MG QNOON

REACTIONS (2)
  - CONVULSION [None]
  - DRUG TOXICITY [None]
